FAERS Safety Report 9916579 (Version 3)
Quarter: 2014Q4

REPORT INFORMATION
  Report Type: Spontaneous
  Country: US (occurrence: US)
  Receive Date: 20140221
  Receipt Date: 20141015
  Transmission Date: 20150529
  Serious: Yes (Hospitalization)
  Sender: FDA-Public Use
  Company Number: US-BAYER-2014-026314

PATIENT
  Age: 37 Year
  Sex: Female
  Weight: 92.97 kg

DRUGS (2)
  1. PARAGARD T380A [Concomitant]
     Active Substance: COPPER
     Dosage: UNK
     Dates: start: 20090223, end: 20100323
  2. MIRENA [Suspect]
     Active Substance: LEVONORGESTREL
     Indication: CONTRACEPTION
     Dosage: 20 MCG/24HR, CONT
     Route: 015
     Dates: start: 20090223, end: 20100323

REACTIONS (8)
  - Drug ineffective [None]
  - Abdominal pain [None]
  - Pregnancy with contraceptive device [None]
  - Uterine perforation [None]
  - Pain [None]
  - Injury [None]
  - Emotional distress [None]
  - Off label use [None]

NARRATIVE: CASE EVENT DATE: 2010
